FAERS Safety Report 6631406-8 (Version None)
Quarter: 2010Q1

REPORT INFORMATION
  Report Type: 
  Country: None (occurrence: None)
  Receive Date: 20100312
  Receipt Date: 20100302
  Transmission Date: 20100710
  Serious: Yes (Death, Hospitalization)
  Sender: FDA-Public Use
  Company Number: DK-JNJFOC-20091203015

PATIENT
  Sex: Female
  Weight: 75 kg

DRUGS (9)
  1. REMICADE [Suspect]
     Indication: RHEUMATOID ARTHRITIS
     Dosage: 2 OR 3 INFUSIONS
     Route: 042
  2. REMICADE [Suspect]
     Dosage: 2 OR 3 INFUSIONS
     Route: 042
  3. REMICADE [Suspect]
     Dosage: 2 OR 3 INFUSIONS
     Route: 042
  4. METHOTREXATE [Suspect]
     Indication: RHEUMATOID ARTHRITIS
     Route: 048
  5. FOLIMET [Concomitant]
     Route: 048
  6. DIAMICRON [Concomitant]
     Indication: TYPE 2 DIABETES MELLITUS
     Dosage: START DATE: BEFORE 29-MAY-2009
     Route: 048
  7. SIMVASTATIN [Concomitant]
     Indication: HYPERCHOLESTEROLAEMIA
     Dosage: START DATE: BEFORE 29-MAY-2009
     Route: 048
  8. CORODIL COMP [Concomitant]
     Dosage: START BEFORE 29-MAY-2009; END BEFORE 18-NOV-2009
     Route: 048
  9. IBUPROFEN [Concomitant]
     Dosage: START DATE: BEFORE 29-MAY-2009

REACTIONS (4)
  - ACUTE INTERSTITIAL PNEUMONITIS [None]
  - DIFFUSE ALVEOLAR DAMAGE [None]
  - RASH [None]
  - RENAL DISORDER [None]
